FAERS Safety Report 20194508 (Version 3)
Quarter: 2022Q1

REPORT INFORMATION
  Report Type: Report from Study
  Country: US (occurrence: US)
  Receive Date: 20211216
  Receipt Date: 20220113
  Transmission Date: 20220424
  Serious: Yes (Other)
  Sender: FDA-Public Use
  Company Number: US-BRISTOL-MYERS SQUIBB COMPANY-BMS-2021-120358

PATIENT
  Age: 77 Year
  Sex: Female
  Weight: 67.574 kg

DRUGS (2)
  1. APIXABAN [Suspect]
     Active Substance: APIXABAN
     Indication: Deep vein thrombosis
     Dosage: 5 MILLIGRAM, BID
     Route: 048
     Dates: start: 202103, end: 202107
  2. APIXABAN [Suspect]
     Active Substance: APIXABAN
     Dosage: 2.5 UNK
     Route: 048

REACTIONS (2)
  - Brain neoplasm [Recovering/Resolving]
  - Treatment noncompliance [Unknown]
